FAERS Safety Report 6870718-X (Version None)
Quarter: 2010Q3

REPORT INFORMATION
  Report Type: 
  Country: None (occurrence: None)
  Receive Date: 20100721
  Receipt Date: 20100617
  Transmission Date: 20110219
  Serious: Yes (Other)
  Sender: FDA-Public Use
  Company Number: JP-SOLVAY-00310003648

PATIENT
  Age: 76 Year
  Sex: Female

DRUGS (12)
  1. LUVOX [Suspect]
     Indication: DEPRESSION
     Dosage: SEE IMAGE
     Route: 048
     Dates: start: 20100302, end: 20100315
  2. LUVOX [Suspect]
     Indication: DEPRESSION
     Dosage: SEE IMAGE
     Route: 048
     Dates: start: 20100316, end: 20100324
  3. LUVOX [Suspect]
     Indication: DEPRESSION
     Dosage: SEE IMAGE
     Route: 048
     Dates: start: 20100325, end: 20100330
  4. LUVOX [Suspect]
     Indication: DEPRESSION
     Dosage: SEE IMAGE
     Route: 048
     Dates: start: 20100331, end: 20100511
  5. LUVOX [Suspect]
     Indication: DEPRESSION
     Dosage: SEE IMAGE
     Route: 048
     Dates: start: 20100512, end: 20100514
  6. LUVOX [Suspect]
     Indication: DEPRESSION
     Dosage: SEE IMAGE
     Route: 048
     Dates: start: 20100515, end: 20100517
  7. EC-DOPARL (LEVODOPA_BENSERAZIDE HYDROCHLORIDE) [Concomitant]
  8. YOKU-KAN-SAN (YOKU-KAN-SAN) [Concomitant]
  9. NITRAZEPAM [Concomitant]
  10. MAGNESIUM OXIDE (MAGNESIUM OXIDE) [Concomitant]
  11. LIVALO (LIVALO) [Concomitant]
  12. GASLON (IRSOGLADINE MALEATE) [Concomitant]

REACTIONS (7)
  - BLOOD CHLORIDE INCREASED [None]
  - BLOOD CHOLESTEROL DECREASED [None]
  - BLOOD GLUCOSE INCREASED [None]
  - BLOOD SODIUM INCREASED [None]
  - MONOCYTE PERCENTAGE INCREASED [None]
  - NEUTROPHIL PERCENTAGE INCREASED [None]
  - PANCYTOPENIA [None]
